FAERS Safety Report 9172778 (Version 1)
Quarter: 2012Q4

REPORT INFORMATION
  Report Type: 
  Country: US (occurrence: US)
  Receive Date: 20120911
  Receipt Date: 20120911
  Transmission Date: 20130627
  Serious: Yes (Other)
  Sender: FDA-Public Use
  Company Number: US-AMGEN-USASP2012056928

PATIENT
  Age: 69 Year
  Sex: Male

DRUGS (6)
  1. PROLIA [Suspect]
     Indication: PRODUCT USED FOR UNKNOWN INDICATION
     Dosage: UNK
     Dates: start: 20120220
  2. HYDROCHLOROTHIAZIDE [Concomitant]
  3. VITAMIN D3 [Concomitant]
     Dosage: 2000 DF, UNK
  4. FIBER [Concomitant]
  5. BACLOFEN [Concomitant]
  6. NAPROXEN [Concomitant]

REACTIONS (5)
  - Cerebrovascular accident [Unknown]
  - Blood sodium decreased [Unknown]
  - Blood potassium decreased [Unknown]
  - Dizziness [Unknown]
  - Diplopia [Unknown]
